FAERS Safety Report 25488667 (Version 1)
Quarter: 2025Q2

REPORT INFORMATION
  Report Type: Spontaneous
  Country: GB (occurrence: GB)
  Receive Date: 20250627
  Receipt Date: 20250627
  Transmission Date: 20250717
  Serious: Yes (Hospitalization)
  Sender: SANDOZ
  Company Number: GB-MHRA-TPP6941389C5047269YC1750408420455

PATIENT
  Age: 56 Year
  Sex: Female
  Weight: 83 kg

DRUGS (15)
  1. CLARITHROMYCIN [Suspect]
     Active Substance: CLARITHROMYCIN
     Indication: Product used for unknown indication
     Dosage: 2X5ML SPOON EVERY 12 HRS ML
     Route: 048
     Dates: start: 20250619
  2. CALCIUM CARBONATE [Concomitant]
     Active Substance: CALCIUM CARBONATE
     Indication: Ill-defined disorder
     Dosage: TAKE ONE DAILY
     Route: 065
     Dates: start: 20220614
  3. Cetraben [Concomitant]
     Indication: Ill-defined disorder
     Route: 065
     Dates: start: 20200219
  4. CYCLOSPORINE [Concomitant]
     Active Substance: CYCLOSPORINE
     Indication: Ill-defined disorder
     Dosage: ONE DROP AT NIGHT
     Route: 065
     Dates: start: 20200219
  5. CLOBETASONE BUTYRATE [Concomitant]
     Active Substance: CLOBETASONE BUTYRATE
     Indication: Ill-defined disorder
     Route: 065
     Dates: start: 20241212
  6. DOXYCYCLINE [Concomitant]
     Active Substance: DOXYCYCLINE
     Indication: Ill-defined disorder
     Route: 065
     Dates: start: 20250502, end: 20250509
  7. BECLOMETHASONE\FORMOTEROL [Concomitant]
     Active Substance: BECLOMETHASONE\FORMOTEROL
     Indication: Ill-defined disorder
     Route: 065
     Dates: start: 20250207
  8. Hydromol [Concomitant]
     Indication: Ill-defined disorder
     Route: 065
     Dates: start: 20240723
  9. Hylo forte [Concomitant]
     Indication: Ill-defined disorder
     Route: 065
     Dates: start: 20200219
  10. Hylo night [Concomitant]
     Indication: Ill-defined disorder
     Route: 065
     Dates: start: 20210831
  11. MOMETASONE [Concomitant]
     Active Substance: MOMETASONE
     Indication: Ill-defined disorder
     Route: 065
     Dates: start: 20241212
  12. OLOPATADINE [Concomitant]
     Active Substance: OLOPATADINE
     Indication: Ill-defined disorder
     Dosage: ONE DROP TWICE DAILY
     Route: 065
     Dates: start: 20200219
  13. OMEPRAZOLE [Concomitant]
     Active Substance: OMEPRAZOLE
     Indication: Ill-defined disorder
     Route: 065
     Dates: start: 20250502, end: 20250509
  14. PREDNISOLONE [Concomitant]
     Active Substance: PREDNISOLONE
     Indication: Ill-defined disorder
     Route: 065
     Dates: start: 20250509, end: 20250516
  15. REFRESH CLASSIC [Concomitant]
     Active Substance: POLYVINYL ALCOHOL\POVIDONE
     Indication: Ill-defined disorder
     Route: 065
     Dates: start: 20200320

REACTIONS (2)
  - Peripheral swelling [Unknown]
  - Dyspnoea [Unknown]
